FAERS Safety Report 8872074 (Version 2)
Quarter: 2012Q4

REPORT INFORMATION
  Report Type: 
  Country: US (occurrence: US)
  Receive Date: 20121027
  Receipt Date: 20121121
  Transmission Date: 20130627
  Serious: No
  Sender: FDA-Public Use
  Company Number: US-009507513-1210USA010161

PATIENT
  Age: 27 None
  Sex: Female

DRUGS (1)
  1. IMPLANON [Suspect]
     Indication: CONTRACEPTION
     Dosage: UNK
     Dates: start: 20080710

REACTIONS (3)
  - Metrorrhagia [Recovered/Resolved]
  - Medical device complication [Unknown]
  - Incorrect drug administration duration [Unknown]
